FAERS Safety Report 10458480 (Version 3)
Quarter: 2014Q4

REPORT INFORMATION
  Report Type: Spontaneous
  Country: GB (occurrence: GB)
  Receive Date: 20140917
  Receipt Date: 20141001
  Transmission Date: 20150528
  Serious: Yes (Hospitalization, Other)
  Sender: FDA-Public Use
  Company Number: GB-AUROBINDO PHARMA LTD-AUR-APL-2014-06399

PATIENT
  Age: 90 Year
  Sex: Female

DRUGS (4)
  1. SIMVASTATIN. [Interacting]
     Active Substance: SIMVASTATIN
     Dosage: 40 MG, ONCE A DAY
     Route: 048
  2. FOLIC ACID. [Concomitant]
     Active Substance: FOLIC ACID
     Indication: PRODUCT USED FOR UNKNOWN INDICATION
     Dosage: 5 MG, UNK
     Route: 065
  3. CLARITHROMYCIN 500MG [Interacting]
     Active Substance: CLARITHROMYCIN
     Indication: PRODUCT USED FOR UNKNOWN INDICATION
     Dosage: 500 MG, TWO TIMES A DAY
     Route: 065
     Dates: start: 20130804
  4. SIMVASTATIN. [Suspect]
     Active Substance: SIMVASTATIN
     Indication: PROPHYLAXIS
     Dosage: UNK
     Route: 048
     Dates: start: 20130808

REACTIONS (11)
  - Renal failure [Unknown]
  - Renal disorder [Unknown]
  - Chromaturia [Unknown]
  - Drug interaction [Unknown]
  - Off label use [Unknown]
  - Myalgia [Unknown]
  - Rales [Unknown]
  - Haemothorax [Unknown]
  - Mobility decreased [Recovered/Resolved]
  - Blood creatinine increased [Unknown]
  - Muscular weakness [Unknown]

NARRATIVE: CASE EVENT DATE: 20130808
